FAERS Safety Report 16069854 (Version 1)
Quarter: 2019Q1

REPORT INFORMATION
  Report Type: Spontaneous
  Country: US (occurrence: US)
  Receive Date: 20190314
  Receipt Date: 20190314
  Transmission Date: 20190418
  Serious: No
  Sender: FDA-Public Use
  Company Number: US-TEVA-2019-US-1016336

PATIENT
  Sex: Male
  Weight: 79.38 kg

DRUGS (3)
  1. WAL-ACT [Concomitant]
     Active Substance: PSEUDOEPHEDRINE HYDROCHLORIDE\TRIPROLIDINE HYDROCHLORIDE
     Indication: SEASONAL ALLERGY
  2. METFORMIN [Suspect]
     Active Substance: METFORMIN HYDROCHLORIDE
     Indication: TYPE 2 DIABETES MELLITUS
     Route: 048
     Dates: start: 2017
  3. IBRANCE [Concomitant]
     Active Substance: PALBOCICLIB
     Indication: BREAST CANCER STAGE IV
     Dates: start: 201710

REACTIONS (2)
  - Mass [Unknown]
  - Therapeutic agent-diagnostic test interaction [Unknown]

NARRATIVE: CASE EVENT DATE: 2017
